FAERS Safety Report 7789665-4 (Version None)
Quarter: 2011Q3

REPORT INFORMATION
  Report Type: 
  Country: None (occurrence: None)
  Receive Date: 20110930
  Receipt Date: 20110921
  Transmission Date: 20111222
  Serious: Yes (Other)
  Sender: FDA-Public Use
  Company Number: US-BAYER-2011-089426

PATIENT
  Sex: Female

DRUGS (2)
  1. MIRENA [Suspect]
     Indication: CONTRACEPTION
     Dosage: 20 MCG/24HR, CONT
     Route: 015
     Dates: start: 20100901, end: 20110901
  2. MIRENA [Suspect]
     Indication: GENITAL HAEMORRHAGE

REACTIONS (6)
  - ABDOMINAL PAIN [None]
  - HEADACHE [None]
  - MALAISE [None]
  - GENITAL HAEMORRHAGE [None]
  - DEVICE EXPULSION [None]
  - RASH [None]
